FAERS Safety Report 20182634 (Version 1)
Quarter: 2021Q4

REPORT INFORMATION
  Report Type: 
  Country: None (occurrence: None)
  Receive Date: 20211214
  Receipt Date: 20211214
  Transmission Date: 20220304
  Serious: Yes (Hospitalization, Other)
  Sender: FDA-Public Use
  Company Number: None

PATIENT
  Age: 27 Year
  Sex: Female

DRUGS (1)
  1. FERROUS SULFATE [Suspect]
     Active Substance: FERROUS SULFATE

REACTIONS (6)
  - Chest pain [Unknown]
  - Odynophagia [Unknown]
  - Nausea [Unknown]
  - Chronic gastritis [Unknown]
  - Gastritis [Unknown]
  - Helicobacter infection [Unknown]
